FAERS Safety Report 4433431-4 (Version None)
Quarter: 2004Q3

REPORT INFORMATION
  Report Type: 
  Country: None (occurrence: None)
  Receive Date: 20040824
  Receipt Date: 20040812
  Transmission Date: 20050211
  Serious: Yes (Hospitalization)
  Sender: FDA-Public Use
  Company Number: 2004228224US

PATIENT
  Age: 76 Year
  Sex: Female
  Weight: 48.5 kg

DRUGS (15)
  1. DETROL LA [Suspect]
     Indication: INCONTINENCE
     Dosage: 2 MG, QD, ORAL
     Route: 048
     Dates: start: 20031101
  2. TYLENOL [Concomitant]
  3. TIAZAC [Concomitant]
  4. COZAAR [Concomitant]
  5. CALCIUM [Concomitant]
  6. PROZAC [Concomitant]
  7. GLUCOSAMINE W/CHONDROITIN SULFATES (MANGANESE) [Concomitant]
  8. SYNTHROID [Concomitant]
  9. ZYRTEC [Concomitant]
  10. KLONOPIN [Concomitant]
  11. ZOCOR [Concomitant]
  12. ACIPHEX [Concomitant]
  13. ADVAIR DISKUS 100/50 [Concomitant]
  14. COMBIVENT [Concomitant]
  15. FLONASE [Concomitant]

REACTIONS (3)
  - CONDITION AGGRAVATED [None]
  - DRY MOUTH [None]
  - GALLBLADDER DISORDER [None]
